FAERS Safety Report 5602520-0 (Version None)
Quarter: 2008Q1

REPORT INFORMATION
  Report Type: 
  Country: None (occurrence: None)
  Receive Date: 20080125
  Receipt Date: 20080114
  Transmission Date: 20080703
  Serious: Yes (Other)
  Sender: FDA-Public Use
  Company Number: B0498807A

PATIENT
  Sex: Male

DRUGS (4)
  1. PAROXETINE [Suspect]
     Indication: POST-TRAUMATIC STRESS DISORDER
     Dates: start: 20010806
  2. ZOPICLONE [Concomitant]
  3. PARACETAMOL [Concomitant]
  4. ALCOHOL [Concomitant]

REACTIONS (21)
  - AGITATION [None]
  - ANGER [None]
  - ANOREXIA [None]
  - ANXIETY [None]
  - ASTHENIA [None]
  - DECREASED INTEREST [None]
  - DEREALISATION [None]
  - DISTURBANCE IN ATTENTION [None]
  - DRUG WITHDRAWAL SYNDROME [None]
  - DYSPNOEA [None]
  - FEAR [None]
  - FEELINGS OF WORTHLESSNESS [None]
  - FLASHBACK [None]
  - INSOMNIA [None]
  - IRRITABILITY [None]
  - NIGHTMARE [None]
  - PALPITATIONS [None]
  - PANIC ATTACK [None]
  - PHYSICAL ASSAULT [None]
  - SUICIDAL IDEATION [None]
  - TREMOR [None]
